FAERS Safety Report 24721300 (Version 2)
Quarter: 2025Q2

REPORT INFORMATION
  Report Type: Spontaneous
  Country: MX (occurrence: MX)
  Receive Date: 20241211
  Receipt Date: 20250505
  Transmission Date: 20250716
  Serious: Yes (Death, Disabling)
  Sender: NOVARTIS
  Company Number: MX-002147023-NVSC2024MX234599

PATIENT
  Age: 84 Year
  Sex: Male

DRUGS (1)
  1. GLIVEC [Suspect]
     Active Substance: IMATINIB MESYLATE
     Indication: Chronic myeloid leukaemia
     Route: 065

REACTIONS (7)
  - Ingrowing nail [Fatal]
  - Diabetes mellitus [Fatal]
  - Impaired healing [Fatal]
  - Skin discolouration [Fatal]
  - Blood creatinine increased [Fatal]
  - Cerebrovascular accident [Unknown]
  - Gait disturbance [Unknown]

NARRATIVE: CASE EVENT DATE: 20230301
